FAERS Safety Report 5269356-4 (Version None)
Quarter: 2007Q1

REPORT INFORMATION
  Report Type: 
  Country: None (occurrence: None)
  Receive Date: 20070319
  Receipt Date: 20070309
  Transmission Date: 20070707
  Serious: Yes (Hospitalization)
  Sender: FDA-Public Use
  Company Number: SK-PFIZER INC-2007018632

PATIENT
  Age: 23 Year
  Sex: Female
  Weight: 83.2 kg

DRUGS (5)
  1. GENOTROPIN [Suspect]
     Indication: HYPOPITUITARISM
     Route: 058
  2. EUTHYROX [Concomitant]
     Route: 048
  3. CORTEF [Concomitant]
     Route: 048
  4. PARLODEL [Concomitant]
     Route: 048
  5. KLIMONORM [Concomitant]
     Route: 048

REACTIONS (2)
  - NEOPLASM RECURRENCE [None]
  - PITUITARY TUMOUR BENIGN [None]
